FAERS Safety Report 7009854-6 (Version None)
Quarter: 2010Q3

REPORT INFORMATION
  Report Type: 
  Country: None (occurrence: None)
  Receive Date: 20100923
  Receipt Date: 20100914
  Transmission Date: 20110219
  Serious: Yes (Hospitalization)
  Sender: FDA-Public Use
  Company Number: NL-ROCHE-727136

PATIENT
  Weight: 74.2 kg

DRUGS (6)
  1. CAPECITABINE [Suspect]
     Indication: GASTRIC CANCER
     Dosage: DOSE, ROUTE, FREQUENCY CAPTURED AS PER PROTOCOL
     Route: 048
     Dates: start: 20100302
  2. CAPECITABINE [Suspect]
     Dosage: LAST DOSE PRIOR TO SAE: 29 AUGUST 2010, DOSE REDUCED
     Route: 048
  3. EPIRUBICIN [Suspect]
     Indication: GASTRIC CANCER
     Dosage: ROUTE, DOSE, FREQUENCY CAPTURED AS PER PROTOCOL
     Route: 042
     Dates: start: 20100302
  4. EPIRUBICIN [Suspect]
     Dosage: LAST DOSE PRIOR TO SAE: 29 AUGUST 2010, DOSE REDUCED
     Route: 042
  5. CISPLATIN [Suspect]
     Indication: GASTRIC CANCER
     Dosage: ROUTE, DOSE, FREQUENCY CAPTURED AS PER PROTOCOL
     Route: 042
     Dates: start: 20100302
  6. CISPLATIN [Suspect]
     Dosage: LAST DOSE PRIOR TO SAE: 29 AUGUST 2010; DOSE REDUCED
     Route: 042

REACTIONS (3)
  - ANAL ABSCESS [None]
  - DIARRHOEA [None]
  - PYREXIA [None]
